FAERS Safety Report 7922980-X (Version None)
Quarter: 2011Q4

REPORT INFORMATION
  Report Type: 
  Country: None (occurrence: None)
  Receive Date: 20111117
  Receipt Date: 20110126
  Transmission Date: 20120403
  Serious: No
  Sender: FDA-Public Use
  Company Number: US-AMGEN-USASP2011004973

PATIENT
  Age: 77 Year
  Sex: Male
  Weight: 182 kg

DRUGS (5)
  1. FINASTERIDE [Concomitant]
     Dosage: 5 MG, UNK
     Route: 048
  2. ENBREL [Suspect]
     Indication: PRODUCT USED FOR UNKNOWN INDICATION
     Dosage: 50 MG, QWK
  3. DIOVAN [Concomitant]
     Dosage: 40 MG, UNK
     Route: 048
  4. SIMVASTATIN [Concomitant]
     Dosage: 10 MG, UNK
     Route: 048
  5. ASPIRIN [Concomitant]
     Dosage: 81 MG, UNK
     Route: 048

REACTIONS (1)
  - THERAPEUTIC RESPONSE DECREASED [None]
